FAERS Safety Report 9521534 (Version 1)
Quarter: 2013Q1

REPORT INFORMATION
  Report Type: Spontaneous
  Country: US (occurrence: None)
  Receive Date: 20130305
  Receipt Date: 20130305
  Transmission Date: 20140127
  Serious: Yes (Disabling)
  Sender: FDA-Public Use
  Company Number: 163-21880-12073306

PATIENT
  Age: 64 Year
  Sex: Male
  Weight: 93.44 kg

DRUGS (12)
  1. REVLIMID [Suspect]
     Indication: PLASMA CELL MYELOMA
     Dosage: 15 MG, 21 IN 28 D, PO
     Route: 048
     Dates: start: 20120719, end: 20120810
  2. PRILOSEC (OMEPRAZOLE) (UNKNOWN) [Concomitant]
  3. VALIUM (DIAZEPAM) (UNKNOWN) [Concomitant]
  4. PRAVACHOL (PRAVASTATIN SODIUM) (UNKNOWN) [Concomitant]
  5. GLUCOPHAGE (METFORMIN) (UNKNOWN) [Concomitant]
  6. LYRICA (PREGABALIN) (UNKNOWN) [Concomitant]
  7. PROTONIX (PANTOPRAZOLE SODIUM) (UNKNOWN) [Concomitant]
  8. VELCADE [Concomitant]
  9. ZOMETA (ZOLEDRONIC ACID) (UNKNOWN) [Concomitant]
  10. HYDROCODONE (HYDROCODONE) (UNKNOWN) [Concomitant]
  11. AMLODIPINE (AMLODIPINE) (UNKNOWN) [Concomitant]
  12. NIACIN (NICOTINIC ACID) (UNKNOWN) [Concomitant]

REACTIONS (2)
  - Rash generalised [None]
  - Leukopenia [None]
